FAERS Safety Report 12890829 (Version 1)
Quarter: 2016Q4

REPORT INFORMATION
  Report Type: Spontaneous
  Country: None (occurrence: US)
  Receive Date: 20161025
  Receipt Date: 20161025
  Transmission Date: 20170207
  Serious: No
  Sender: FDA-Public Use
  Company Number: None

PATIENT
  Sex: Female

DRUGS (1)
  1. IBRANCE [Suspect]
     Active Substance: PALBOCICLIB
     Indication: BREAST CANCER FEMALE
     Dosage: 100 MG ONCE DAILY FOR 21 DAYS BY MOUTH
     Route: 048
     Dates: start: 20160901

REACTIONS (3)
  - Neuropathy peripheral [None]
  - Therapy cessation [None]
  - White blood cell count decreased [None]
